FAERS Safety Report 5378586-2 (Version None)
Quarter: 2007Q3

REPORT INFORMATION
  Report Type: 
  Country: None (occurrence: None)
  Receive Date: 20070702
  Receipt Date: 20070702
  Transmission Date: 20080115
  Serious: Yes (Other)
  Sender: FDA-Public Use
  Company Number: None

PATIENT
  Sex: Female
  Weight: 50.3493 kg

DRUGS (1)
  1. BONIVA [Suspect]
     Indication: OSTEOPOROSIS
     Dosage: 150MG Q 3 MO -1 ONLY- IV BOLUS
     Route: 040
     Dates: start: 20070305, end: 20070305

REACTIONS (4)
  - ANOREXIA [None]
  - ARTHRALGIA [None]
  - FATIGUE [None]
  - MYALGIA [None]
